FAERS Safety Report 7020137-0 (Version None)
Quarter: 2010Q3

REPORT INFORMATION
  Report Type: 
  Country: None (occurrence: None)
  Receive Date: 20100927
  Receipt Date: 20100917
  Transmission Date: 20110219
  Serious: Yes (Hospitalization)
  Sender: FDA-Public Use
  Company Number: UTC-001455

PATIENT
  Age: 67 Year
  Sex: Female

DRUGS (1)
  1. REMODULIN [Suspect]
     Dosage: SUBCUTANEOUS
     Route: 058

REACTIONS (6)
  - ANURIA [None]
  - BREAST DISCOLOURATION [None]
  - CLOSTRIDIAL INFECTION [None]
  - GENERALISED OEDEMA [None]
  - SKIN DISCOLOURATION [None]
  - WEIGHT DECREASED [None]
